FAERS Safety Report 6334141-9 (Version None)
Quarter: 2009Q3

REPORT INFORMATION
  Report Type: 
  Country: None (occurrence: None)
  Receive Date: 20090829
  Receipt Date: 20090720
  Transmission Date: 20100115
  Serious: No
  Sender: FDA-Public Use
  Company Number: US-ABBOTT-09P-163-0586974-00

PATIENT
  Sex: Female
  Weight: 74.91 kg

DRUGS (8)
  1. SIMCOR [Suspect]
     Indication: BLOOD TRIGLYCERIDES INCREASED
     Route: 048
     Dates: start: 20090601
  2. SIMCOR [Suspect]
     Indication: HIGH DENSITY LIPOPROTEIN DECREASED
  3. SIMCOR [Suspect]
     Indication: LOW DENSITY LIPOPROTEIN INCREASED
  4. ZESTRIL [Concomitant]
     Indication: DRUG USE FOR UNKNOWN INDICATION
  5. NORVASC [Concomitant]
     Indication: DRUG USE FOR UNKNOWN INDICATION
  6. CHANTIX [Concomitant]
     Indication: EX-TOBACCO USER
  7. FIORCET [Concomitant]
     Indication: MIGRAINE
  8. VICODIN [Concomitant]
     Indication: PAIN
     Dates: start: 20040101

REACTIONS (4)
  - CONSTIPATION [None]
  - DRY SKIN [None]
  - FLATULENCE [None]
  - HAIR TEXTURE ABNORMAL [None]
